FAERS Safety Report 10684878 (Version 1)
Quarter: 2014Q4

REPORT INFORMATION
  Report Type: Spontaneous
  Country: CA (occurrence: CA)
  Receive Date: 20141231
  Receipt Date: 20141231
  Transmission Date: 20150529
  Serious: Yes (Other)
  Sender: FDA-Public Use
  Company Number: PHHY2014CA168635

PATIENT
  Sex: Female
  Weight: 3.46 kg

DRUGS (1)
  1. ZOLEDRONATE [Suspect]
     Active Substance: ZOLEDRONIC ACID
     Indication: PATHOLOGICAL FRACTURE
     Route: 042

REACTIONS (3)
  - Tibia fracture [Unknown]
  - Foot fracture [Unknown]
  - Fibula fracture [Unknown]
